FAERS Safety Report 13058217 (Version 1)
Quarter: 2016Q4

REPORT INFORMATION
  Report Type: Spontaneous
  Country: IN (occurrence: IN)
  Receive Date: 20161223
  Receipt Date: 20161223
  Transmission Date: 20170207
  Serious: Yes (Life-Threatening, Other)
  Sender: FDA-Public Use
  Company Number: IN-ACCORD-046644

PATIENT
  Age: 24 Year
  Sex: Male

DRUGS (2)
  1. LEVETIRACETAM. [Suspect]
     Active Substance: LEVETIRACETAM
     Indication: SEIZURE
  2. TOPIRAMATE. [Suspect]
     Active Substance: TOPIRAMATE
     Indication: SEIZURE

REACTIONS (5)
  - Hyperventilation [Recovered/Resolved]
  - Depressed level of consciousness [Recovered/Resolved]
  - Thrombocytopenia [Unknown]
  - Renal tubular acidosis [Recovered/Resolved]
  - Acid-base balance disorder mixed [Recovered/Resolved]
